FAERS Safety Report 19244359 (Version 2)
Quarter: 2021Q2

REPORT INFORMATION
  Report Type: Report from Study
  Country: NL (occurrence: NL)
  Receive Date: 20210511
  Receipt Date: 20210524
  Transmission Date: 20210717
  Serious: Yes (Death)
  Sender: FDA-Public Use
  Company Number: NVSC2021NL042002

PATIENT
  Age: 80 Year
  Sex: Male
  Weight: 76 kg

DRUGS (1)
  1. INC280 [Suspect]
     Active Substance: CAPMATINIB
     Indication: NON-SMALL CELL LUNG CANCER
     Dosage: 800 MG (2 X 400 MG)
     Route: 048
     Dates: start: 20210209, end: 20210413

REACTIONS (11)
  - Myocardial infarction [Fatal]
  - Confusional state [Fatal]
  - Restlessness [Fatal]
  - Vision blurred [Fatal]
  - Balance disorder [Fatal]
  - Dyspnoea [Fatal]
  - Neoplasm [Fatal]
  - Palpitations [Fatal]
  - Ischaemic stroke [Fatal]
  - Dizziness [Fatal]
  - Cystitis [Recovered/Resolved]

NARRATIVE: CASE EVENT DATE: 20210213
